FAERS Safety Report 21787827 (Version 1)
Quarter: 2022Q4

REPORT INFORMATION
  Report Type: Spontaneous
  Country: US (occurrence: US)
  Receive Date: 20221228
  Receipt Date: 20221228
  Transmission Date: 20230112
  Serious: No
  Sender: FDA-Public Use
  Company Number: US-SA-SAC20221227000096

PATIENT
  Age: 66 Year
  Sex: Female

DRUGS (8)
  1. DUPIXENT [Suspect]
     Active Substance: DUPILUMAB
     Indication: Asthma
     Dosage: 1 SYRINGE QOW
     Route: 058
     Dates: start: 20211027
  2. OMEPRAZOLE [Concomitant]
     Active Substance: OMEPRAZOLE
  3. MONTELUKAST [Concomitant]
     Active Substance: MONTELUKAST SODIUM
  4. JARDIANCE [Concomitant]
     Active Substance: EMPAGLIFLOZIN
  5. TIZANIDINE [Concomitant]
     Active Substance: TIZANIDINE
  6. FLUTICASONE [Concomitant]
     Active Substance: FLUTICASONE
  7. HYDROXYZINE [Concomitant]
     Active Substance: HYDROXYZINE HYDROCHLORIDE
  8. BACLOFEN [Concomitant]
     Active Substance: BACLOFEN

REACTIONS (1)
  - Product storage error [Unknown]
